FAERS Safety Report 23925803 (Version 1)
Quarter: 2024Q2

REPORT INFORMATION
  Report Type: Spontaneous
  Country: US (occurrence: None)
  Receive Date: 20240531
  Receipt Date: 20240531
  Transmission Date: 20240716
  Serious: Yes (Hospitalization)
  Sender: FDA-Public Use
  Company Number: None

PATIENT
  Age: 58 Year
  Sex: Female

DRUGS (11)
  1. LENALIDOMIDE [Suspect]
     Active Substance: LENALIDOMIDE
     Indication: Plasma cell myeloma
     Dosage: FREQUENCY : AS DIRECTED;?
     Route: 048
     Dates: start: 20240409
  2. ALBUTEROL AER HFA [Concomitant]
  3. FERROUS SULFATE [Concomitant]
     Active Substance: FERROUS SULFATE
  4. FLONASE ALGY [Concomitant]
  5. ACETAMINOPHEN\HYDROCODONE [Concomitant]
     Active Substance: ACETAMINOPHEN\HYDROCODONE
  6. HYDROCORT CRE [Concomitant]
  7. LDIO/PROLOCN CRE [Concomitant]
  8. MAXITROL OIN [Concomitant]
  9. MOMETASONE [Concomitant]
  10. MULTIVITAMIN [Concomitant]
  11. ONDANSETRON [Concomitant]

REACTIONS (2)
  - Pneumonia [None]
  - Intentional dose omission [None]

NARRATIVE: CASE EVENT DATE: 20240505
